FAERS Safety Report 15616176 (Version 1)
Quarter: 2018Q4

REPORT INFORMATION
  Report Type: Spontaneous
  Country: TH (occurrence: TH)
  Receive Date: 20181114
  Receipt Date: 20181114
  Transmission Date: 20190205
  Serious: Yes (Death)
  Sender: FDA-Public Use
  Company Number: TH-BAXTER-2018BAX028163

PATIENT
  Age: 62 Year
  Sex: Male

DRUGS (1)
  1. DIANEAL LOW CALCIUM PERITONEAL DIALYSIS SOLUTION WITH DEXTROSE [Suspect]
     Active Substance: CALCIUM CHLORIDE\DEXTROSE\MAGNESIUM CHLORIDE\SODIUM CHLORIDE\SODIUM LACTATE
     Indication: PERITONEAL DIALYSIS
     Dosage: DWELL TIME OF 10 HOURS
     Route: 033
     Dates: start: 20181006, end: 20181101

REACTIONS (1)
  - Death [Fatal]

NARRATIVE: CASE EVENT DATE: 20181101
